FAERS Safety Report 10674808 (Version 4)
Quarter: 2016Q4

REPORT INFORMATION
  Report Type: Spontaneous
  Country: US (occurrence: US)
  Receive Date: 20141224
  Receipt Date: 20161121
  Transmission Date: 20170206
  Serious: Yes (Other)
  Sender: FDA-Public Use
  Company Number: US-JNJFOC-20141217232

PATIENT
  Sex: Male

DRUGS (5)
  1. PLAVIX [Concomitant]
     Active Substance: CLOPIDOGREL BISULFATE
  2. SOMA [Concomitant]
     Active Substance: CARISOPRODOL
  3. LORTAB [Concomitant]
     Active Substance: ACETAMINOPHEN\HYDROCODONE BITARTRATE
  4. IMBRUVICA [Suspect]
     Active Substance: IBRUTINIB
     Indication: CHRONIC LYMPHOCYTIC LEUKAEMIA
     Route: 048
     Dates: start: 20140905
  5. COREG [Concomitant]
     Active Substance: CARVEDILOL

REACTIONS (2)
  - Skin cancer [Not Recovered/Not Resolved]
  - Cancer pain [Unknown]

NARRATIVE: CASE EVENT DATE: 2014
